FAERS Safety Report 17372448 (Version 1)
Quarter: 2020Q1

REPORT INFORMATION
  Report Type: Spontaneous
  Country: GB (occurrence: GB)
  Receive Date: 20200205
  Receipt Date: 20200205
  Transmission Date: 20200409
  Serious: Yes (Other)
  Sender: FDA-Public Use
  Company Number: GB-BRISTOL-MYERS SQUIBB COMPANY-BMS-2019-097722

PATIENT
  Age: 84 Year
  Sex: Female

DRUGS (39)
  1. PREDNISOLONE. [Concomitant]
     Active Substance: PREDNISOLONE
     Indication: POLYMYALGIA RHEUMATICA
     Dosage: THREE DAILY FOR ONE WEEK THEN 2 DAILY FOR ONE WEEK
     Route: 065
     Dates: start: 201806
  2. PREDNISOLONE. [Concomitant]
     Active Substance: PREDNISOLONE
     Indication: PRODUCT USED FOR UNKNOWN INDICATION
     Dosage: TWO TABLEST DAILY ALL TOGETHER IN MORNING (10MG TOTAL DAILY DOSE)
     Route: 065
  3. OMEPRAZOLE. [Concomitant]
     Active Substance: OMEPRAZOLE
     Indication: PRODUCT USED FOR UNKNOWN INDICATION
     Dosage: ONE TO BE TAKEN EACH DAY WHILST ON STEROIDS
     Route: 065
     Dates: start: 201806
  4. PREDNISOLONE. [Concomitant]
     Active Substance: PREDNISOLONE
     Indication: PRODUCT USED FOR UNKNOWN INDICATION
     Dosage: TWO TO BE TAKEN DAILY FOR 4 WEEKS FROM START OF THIS BATCH
     Route: 065
     Dates: start: 201806
  5. PREDNISOLONE. [Concomitant]
     Active Substance: PREDNISOLONE
     Indication: PRODUCT USED FOR UNKNOWN INDICATION
     Dosage: FOUR TO BE TAKEN DAILY NEXT PLANNED DOSE REDUCTION ON 19-NOV-2019
     Route: 065
  6. PREDNISOLONE. [Concomitant]
     Active Substance: PREDNISOLONE
     Indication: PRODUCT USED FOR UNKNOWN INDICATION
     Dosage: 2 DAILY (TOTAL DAILY DOSE 7MG)
     Route: 065
  7. APIXABAN [Suspect]
     Active Substance: APIXABAN
     Indication: CEREBROVASCULAR ACCIDENT PROPHYLAXIS
     Dosage: 2.5 MILLIGRAM, BID
     Route: 048
     Dates: start: 20170412, end: 2019
  8. ACCRETE D3 [Concomitant]
     Active Substance: CALCIUM CARBONATE\CHOLECALCIFEROL
     Indication: PRODUCT USED FOR UNKNOWN INDICATION
     Dosage: UNK UNK, BID (MORNING AND EVENING)
     Route: 065
  9. PREDNISOLONE. [Concomitant]
     Active Substance: PREDNISOLONE
     Indication: PRODUCT USED FOR UNKNOWN INDICATION
     Dosage: 2 TABLETS DAILY
     Route: 065
  10. PIROXICAM. [Concomitant]
     Active Substance: PIROXICAM
     Indication: PRODUCT USED FOR UNKNOWN INDICATION
     Dosage: APPLY THREE OR FOUR TIMES A DAY (60 GRAM QUANTITY)
     Route: 065
  11. PREDNISOLONE. [Concomitant]
     Active Substance: PREDNISOLONE
     Indication: PRODUCT USED FOR UNKNOWN INDICATION
     Dosage: ONE DAILY (TOTAL DOSE 6MG FOR 1 MONTH) REDUCE BY 1MG PER MONTH
     Route: 065
  12. SERTRALINE [Concomitant]
     Active Substance: SERTRALINE HYDROCHLORIDE
     Indication: PRODUCT USED FOR UNKNOWN INDICATION
     Dosage: ONE TO BE TAKEN EACH DAY
     Route: 065
     Dates: start: 20170914
  13. ZOPICLONE [Concomitant]
     Active Substance: ZOPICLONE
     Indication: PRODUCT USED FOR UNKNOWN INDICATION
     Dosage: 1-2 N IF ABSOLUTELY NECESSARY
     Route: 065
     Dates: start: 201706
  14. PREDNISOLONE. [Concomitant]
     Active Substance: PREDNISOLONE
     Indication: PRODUCT USED FOR UNKNOWN INDICATION
     Dosage: ONE TO BE TAKEN DAILY (TOTAL DOSE 5MG) FOR 4 WEEKS PLANNED DOSE REDUCTION AROUND 22 OCTOBER
     Route: 065
     Dates: start: 201806, end: 20191218
  15. PREDNISOLONE. [Concomitant]
     Active Substance: PREDNISOLONE
     Indication: PRODUCT USED FOR UNKNOWN INDICATION
     Dosage: TWO DAILY (DAILY DOSE 12.5MG)
     Route: 065
  16. PREDNISOLONE. [Concomitant]
     Active Substance: PREDNISOLONE
     Indication: PRODUCT USED FOR UNKNOWN INDICATION
     Dosage: 3 TABLETS DAILY
     Route: 065
  17. BISOPROLOL [Concomitant]
     Active Substance: BISOPROLOL
     Indication: PRODUCT USED FOR UNKNOWN INDICATION
     Dosage: ONE TO BE TAKEN EACH DAY
     Route: 065
     Dates: start: 201702
  18. PREDNISOLONE. [Concomitant]
     Active Substance: PREDNISOLONE
     Indication: PRODUCT USED FOR UNKNOWN INDICATION
     Dosage: 3 DAILY (15MG DAILY)
     Route: 065
  19. PREDNISOLONE. [Concomitant]
     Active Substance: PREDNISOLONE
     Indication: PRODUCT USED FOR UNKNOWN INDICATION
     Dosage: 4 DAILY IN MORNING (TOTAL DAILY DOSE 9MG)
     Route: 065
  20. AMITRIPTYLINE [Concomitant]
     Active Substance: AMITRIPTYLINE
     Indication: PRODUCT USED FOR UNKNOWN INDICATION
     Dosage: ONE TO FOUR TABLETS AT NIGHT
     Route: 065
  21. PREDNISOLONE. [Concomitant]
     Active Substance: PREDNISOLONE
     Indication: PRODUCT USED FOR UNKNOWN INDICATION
     Dosage: UNK, QD (DAILY DOSE OF 8MG)
     Route: 065
  22. MELATONIN [Concomitant]
     Active Substance: MELATONIN
     Indication: PRODUCT USED FOR UNKNOWN INDICATION
     Dosage: UNK, QD, 7 TABLET QUANTITY
     Route: 065
     Dates: start: 201906
  23. PREDNISOLONE. [Concomitant]
     Active Substance: PREDNISOLONE
     Indication: PRODUCT USED FOR UNKNOWN INDICATION
     Dosage: ONE TABLET IN MORNING (TOTAL DAILY DOSE 12.5MG)
     Route: 065
  24. PREGABALIN. [Concomitant]
     Active Substance: PREGABALIN
     Indication: PRODUCT USED FOR UNKNOWN INDICATION
     Dosage: 25 MILLIGRAM CAPSULES ONE TO BE TAKEN TWICE A DAY TO TAKE WITH 50MG TABLETS
     Route: 065
     Dates: start: 201803
  25. PREDNISOLONE. [Concomitant]
     Active Substance: PREDNISOLONE
     Indication: PRODUCT USED FOR UNKNOWN INDICATION
     Dosage: 2 TABLETS DAILY
     Route: 065
  26. CODEINE [Concomitant]
     Active Substance: CODEINE
     Indication: PRODUCT USED FOR UNKNOWN INDICATION
     Dosage: 1-2 AS REQUIRED FOR PAIN WITH PARACETAMOL UP TO 4 TIMES A DAY
     Route: 065
     Dates: start: 201805
  27. PREGABALIN. [Concomitant]
     Active Substance: PREGABALIN
     Indication: PRODUCT USED FOR UNKNOWN INDICATION
     Dosage: 50MG ONE CAPSULE TWICE DAILY
     Route: 065
  28. PREDNISOLONE. [Concomitant]
     Active Substance: PREDNISOLONE
     Indication: PRODUCT USED FOR UNKNOWN INDICATION
     Dosage: UNK, QD (DAILY DOSE OF 9MG) IN MORNING
     Route: 065
  29. DOCUSATE [Concomitant]
     Active Substance: DOCUSATE
     Indication: CONSTIPATION
     Dosage: 100 MILLIGRAM, BID (IF NEEDED) (30 CAPSULE)
     Route: 065
     Dates: start: 201805, end: 20191212
  30. CARBOMER [Concomitant]
     Active Substance: CARBOMER
     Indication: EYE DISORDER
     Dosage: UNK UNK, QID, 20 GRAMS
     Route: 065
     Dates: start: 201506, end: 20191212
  31. PREDNISOLONE. [Concomitant]
     Active Substance: PREDNISOLONE
     Indication: PRODUCT USED FOR UNKNOWN INDICATION
     Dosage: ONE TO BE TAKEN EACH DAY FOR THREE WEEKS
     Route: 065
  32. TRAMADOL. [Concomitant]
     Active Substance: TRAMADOL
     Indication: PRODUCT USED FOR UNKNOWN INDICATION
     Dosage: 1 TO 2 TO BE TAKEN EVERY 4 TO 6HOURS UP TO FOUR TIMES A DAY
     Route: 065
     Dates: start: 201806
  33. ATORVASTATIN [Concomitant]
     Active Substance: ATORVASTATIN
     Indication: PRODUCT USED FOR UNKNOWN INDICATION
     Dosage: ON EDAY TO BE TAKEN EACH
     Route: 065
  34. ALENDRONIC ACID [Concomitant]
     Active Substance: ALENDRONIC ACID
     Indication: PRODUCT USED FOR UNKNOWN INDICATION
     Dosage: ONE TO BE TAKEN ON THE SAME DAY EACH WEEK
     Route: 065
     Dates: start: 201901
  35. LANSOPRAZOLE. [Concomitant]
     Active Substance: LANSOPRAZOLE
     Indication: PRODUCT USED FOR UNKNOWN INDICATION
     Dosage: UNK, ON ETO BE TAKEN EACH MORNING WHILE TAKING STEROIDS
     Route: 065
     Dates: start: 201907, end: 20190814
  36. PREDNISOLONE. [Concomitant]
     Active Substance: PREDNISOLONE
     Indication: PRODUCT USED FOR UNKNOWN INDICATION
     Dosage: 4 TABLETS OF 1MG STRENGTH (5MG =9MG) FOR A MONTH REDUCE BY 1 MG PER MONTH AS BY PHYSICIAN
     Route: 065
  37. MIRTAZAPINE. [Concomitant]
     Active Substance: MIRTAZAPINE
     Indication: PRODUCT USED FOR UNKNOWN INDICATION
     Dosage: ONE TO BE TAKEN AT NIGHT
     Route: 065
     Dates: start: 201807
  38. PREGABALIN. [Concomitant]
     Active Substance: PREGABALIN
     Indication: PRODUCT USED FOR UNKNOWN INDICATION
     Dosage: 100 MG CAPSULES ONE TO BE TAKEN TWICE A DAY
     Route: 065
  39. GABAPENTIN. [Concomitant]
     Active Substance: GABAPENTIN
     Indication: PRODUCT USED FOR UNKNOWN INDICATION
     Dosage: 2 TABLEST THREE TIMES A DAY
     Route: 065
     Dates: start: 201710

REACTIONS (8)
  - Alopecia [Not Recovered/Not Resolved]
  - Polymyalgia rheumatica [Unknown]
  - Squamous cell carcinoma of skin [Unknown]
  - Balance disorder [Unknown]
  - Osteoarthritis [Unknown]
  - Asthenopia [Unknown]
  - Weight increased [Unknown]
  - Depression [Unknown]

NARRATIVE: CASE EVENT DATE: 2017
